FAERS Safety Report 24778474 (Version 1)
Quarter: 2024Q4

REPORT INFORMATION
  Report Type: Spontaneous
  Country: US (occurrence: US)
  Receive Date: 20241226
  Receipt Date: 20241226
  Transmission Date: 20250114
  Serious: No
  Sender: SANOFI AVENTIS
  Company Number: US-SA-2024SA380221

PATIENT
  Sex: Male
  Weight: 106.36 kg

DRUGS (1)
  1. DUPIXENT [Suspect]
     Active Substance: DUPILUMAB
     Indication: Illness
     Dosage: 300 MG, PRN
     Route: 058

REACTIONS (2)
  - Condition aggravated [Unknown]
  - Intentional product misuse [Unknown]
